FAERS Safety Report 4523699-8 (Version None)
Quarter: 2004Q4

REPORT INFORMATION
  Report Type: 
  Country: None (occurrence: None)
  Receive Date: 20041210
  Receipt Date: 20041129
  Transmission Date: 20050328
  Serious: Yes (Hospitalization)
  Sender: FDA-Public Use
  Company Number: FR-GLAXOSMITHKLINE-B0358387A

PATIENT
  Age: 81 Year
  Sex: Female

DRUGS (2)
  1. DEROXAT [Suspect]
     Dosage: 20MG PER DAY
     Route: 048
     Dates: start: 20040110, end: 20040123
  2. SEGLOR [Suspect]
     Indication: ORTHOSTATIC HYPOTENSION
     Dosage: 2UNIT TWICE PER DAY
     Route: 048
     Dates: start: 20040110, end: 20040123

REACTIONS (4)
  - CEREBRAL ATROPHY [None]
  - CONFUSIONAL STATE [None]
  - FALL [None]
  - HYPONATRAEMIA [None]
